FAERS Safety Report 20987484 (Version 8)
Quarter: 2022Q4

REPORT INFORMATION
  Report Type: Spontaneous
  Country: JP (occurrence: JP)
  Receive Date: 20220621
  Receipt Date: 20221121
  Transmission Date: 20230112
  Serious: Yes (Hospitalization, Other)
  Sender: FDA-Public Use
  Company Number: JP-ONO-2022JP016695

PATIENT
  Age: 72 Year
  Sex: Male
  Weight: 51 kg

DRUGS (13)
  1. ENCORAFENIB [Suspect]
     Active Substance: ENCORAFENIB
     Indication: Colon cancer
     Dosage: 300 MG, 1X/DAY
     Route: 048
     Dates: start: 20211018, end: 20211019
  2. ENCORAFENIB [Suspect]
     Active Substance: ENCORAFENIB
     Dosage: 225 MG DAY 9
     Route: 048
     Dates: start: 20211026, end: 20211027
  3. ENCORAFENIB [Suspect]
     Active Substance: ENCORAFENIB
     Dosage: 150 MG
     Route: 048
     Dates: start: 20211029
  4. BINIMETINIB [Suspect]
     Active Substance: BINIMETINIB
     Indication: Colon cancer
     Dosage: 90 MG
     Route: 048
     Dates: start: 20211018, end: 20211019
  5. BINIMETINIB [Suspect]
     Active Substance: BINIMETINIB
     Dosage: 60 MG
     Route: 048
     Dates: start: 20211026, end: 20211027
  6. BINIMETINIB [Suspect]
     Active Substance: BINIMETINIB
     Dosage: 30 MG ON DAY 9
     Route: 048
     Dates: start: 20211029
  7. BINIMETINIB [Suspect]
     Active Substance: BINIMETINIB
     Dosage: 45 MG, 2X/DAY
  8. BINIMETINIB [Suspect]
     Active Substance: BINIMETINIB
     Dosage: 15 MG
  9. CETUXIMAB [Suspect]
     Active Substance: CETUXIMAB
     Indication: Colon cancer
     Dosage: 580 MG
     Route: 065
     Dates: start: 20211018
  10. CETUXIMAB [Suspect]
     Active Substance: CETUXIMAB
     Dosage: 360 MG
     Route: 065
     Dates: start: 20211026
  11. CETUXIMAB [Suspect]
     Active Substance: CETUXIMAB
     Dosage: 350 MG
  12. CETUXIMAB [Suspect]
     Active Substance: CETUXIMAB
     Dosage: 400 MG/M2, CYCLIC (DAY 1)
  13. CETUXIMAB [Suspect]
     Active Substance: CETUXIMAB
     Dosage: 250 MG/M2, CYCLIC (DAY 8, 15, 22)

REACTIONS (2)
  - Serous retinal detachment [Recovered/Resolved]
  - Serous retinal detachment [Recovered/Resolved]

NARRATIVE: CASE EVENT DATE: 20211019
